FAERS Safety Report 9226780 (Version 1)
Quarter: 2013Q2

REPORT INFORMATION
  Report Type: Spontaneous
  Country: US (occurrence: None)
  Receive Date: 20130410
  Receipt Date: 20130410
  Transmission Date: 20140414
  Serious: No
  Sender: FDA-Public Use
  Company Number: None

PATIENT
  Age: 83 Year
  Sex: Male
  Weight: 54.6 kg

DRUGS (1)
  1. DABIGATRAN [Suspect]
     Indication: ATRIAL FIBRILLATION
     Route: 048
     Dates: start: 20110607, end: 20120709

REACTIONS (9)
  - Fatigue [None]
  - Malaise [None]
  - Malaise [None]
  - Dizziness [None]
  - Sedation [None]
  - Syncope [None]
  - Asthenia [None]
  - Cholelithiasis [None]
  - Ileus [None]
